FAERS Safety Report 10475855 (Version 2)
Quarter: 2014Q3

REPORT INFORMATION
  Report Type: Spontaneous
  Country: JP (occurrence: JP)
  Receive Date: 20140925
  Receipt Date: 20140925
  Transmission Date: 20150326
  Serious: No
  Sender: FDA-Public Use
  Company Number: JP-GLAXOSMITHKLINE-B0701292A

PATIENT
  Age: 34 Year
  Sex: Female

DRUGS (2)
  1. SODIUM FERROUS CITRATE [Concomitant]
     Indication: ANAEMIA
     Dosage: 4IUAX PER DAY
     Route: 048
     Dates: start: 20101217, end: 20110203
  2. RELENZA [Suspect]
     Active Substance: ZANAMIVIR
     Indication: INFLUENZA
     Dosage: 40MG PER DAY
     Route: 055
     Dates: start: 20110203, end: 20110205

REACTIONS (3)
  - Overdose [Unknown]
  - Exposure during pregnancy [Unknown]
  - Caesarean section [Unknown]

NARRATIVE: CASE EVENT DATE: 20110203
